FAERS Safety Report 8429720-9 (Version None)
Quarter: 2012Q2

REPORT INFORMATION
  Report Type: 
  Country: None (occurrence: None)
  Receive Date: 20120612
  Receipt Date: 20120605
  Transmission Date: 20120825
  Serious: Yes (Other)
  Sender: FDA-Public Use
  Company Number: US-PFIZER INC-2012136286

PATIENT
  Age: 55 Year
  Sex: Female

DRUGS (17)
  1. METOPROLOL [Concomitant]
  2. NIACIN [Concomitant]
  3. ACETYLSALICYLIC ACID [Concomitant]
  4. DARBEPOETIN ALFA [Concomitant]
  5. GENTAMICIN SULFATE [Suspect]
  6. ATORVASTATIN [Concomitant]
  7. HEPARIN [Concomitant]
  8. FUROSEMIDE [Concomitant]
  9. CIPROFLOXACIN [Concomitant]
  10. VANCOMYCIN [Suspect]
  11. MOXIFLOXACIN [Concomitant]
  12. AZITHROMYCIN [Suspect]
     Indication: PNEUMONIA PRIMARY ATYPICAL
     Dosage: 500 MG, 1X/DAY
  13. PANTOPRAZOLE [Concomitant]
  14. QUINAPRIL [Concomitant]
  15. MULTI-VITAMINS [Concomitant]
  16. METHYLPREDNISOLONE [Concomitant]
  17. GUAIFENESIN [Concomitant]

REACTIONS (5)
  - RENAL FAILURE ACUTE [None]
  - COUGH [None]
  - ELECTROCARDIOGRAM QT PROLONGED [None]
  - TORSADE DE POINTES [None]
  - DYSPNOEA [None]
